FAERS Safety Report 4959833-5 (Version None)
Quarter: 2006Q1

REPORT INFORMATION
  Report Type: 
  Country: None (occurrence: None)
  Receive Date: 20060328
  Receipt Date: 20060317
  Transmission Date: 20060701
  Serious: No
  Sender: FDA-Public Use
  Company Number: T200600042

PATIENT
  Age: 52 Year
  Sex: Male
  Weight: 106.1 kg

DRUGS (10)
  1. METHADOSE [Suspect]
     Indication: DRUG DEPENDENCE
     Dosage: 145 MG, QD, ORAL; 20 MG, ORAL; 20 MG; ORAL; 165 MG, ORAL
     Route: 048
     Dates: start: 20060308, end: 20060308
  2. METHADOSE [Suspect]
     Indication: DRUG DEPENDENCE
     Dosage: 145 MG, QD, ORAL; 20 MG, ORAL; 20 MG; ORAL; 165 MG, ORAL
     Route: 048
     Dates: start: 20030516, end: 20060309
  3. METHADOSE [Suspect]
     Indication: DRUG DEPENDENCE
     Dosage: 145 MG, QD, ORAL; 20 MG, ORAL; 20 MG; ORAL; 165 MG, ORAL
     Route: 048
     Dates: start: 20060309, end: 20060309
  4. METHADOSE [Suspect]
     Indication: DRUG DEPENDENCE
     Dosage: 145 MG, QD, ORAL; 20 MG, ORAL; 20 MG; ORAL; 165 MG, ORAL
     Route: 048
     Dates: start: 20060310, end: 20060310
  5. XANAX [Concomitant]
  6. CENTRUM SILVER [Concomitant]
  7. MILK THISTLE [Concomitant]
  8. GLUCOSAMINE W/CHONDROITIN SULFATE (GLUCOSAMINE, CHONDROITIN SULFATE) [Concomitant]
  9. HYDROCODONE W/APAP (HYDROCODONE, PARACETAMOL) TABLET [Concomitant]
  10. RESTORIL [Concomitant]

REACTIONS (9)
  - BIPOLAR DISORDER [None]
  - DRUG WITHDRAWAL SYNDROME [None]
  - EUPHORIC MOOD [None]
  - HYPERCHOLESTEROLAEMIA [None]
  - HYPOAESTHESIA [None]
  - INTERVERTEBRAL DISC DEGENERATION [None]
  - INTERVERTEBRAL DISC PROTRUSION [None]
  - TUBERCULOSIS [None]
  - VOMITING [None]
